FAERS Safety Report 25925923 (Version 1)
Quarter: 2025Q4

REPORT INFORMATION
  Report Type: Spontaneous
  Country: US (occurrence: None)
  Receive Date: 20251014
  Receipt Date: 20251014
  Transmission Date: 20260118
  Serious: Yes (Disabling)
  Sender: FDA-CTU
  Company Number: None

PATIENT
  Age: 41 Year
  Sex: Female
  Weight: 72 kg

DRUGS (1)
  1. MONISTAT [Suspect]
     Active Substance: MICONAZOLE NITRATE
     Indication: Fungal infection
     Dosage: OTHER QUANTITY : 3 SUPPOSITORY(IES);?FREQUENCY : DAILY;?
     Route: 067
     Dates: start: 20251011, end: 20251013

REACTIONS (8)
  - Vulvovaginal burning sensation [None]
  - Vulvovaginal injury [None]
  - Skin laceration [None]
  - Vulvovaginal swelling [None]
  - Dysuria [None]
  - Gait disturbance [None]
  - Application site pain [None]
  - Emotional distress [None]

NARRATIVE: CASE EVENT DATE: 20251012
